FAERS Safety Report 9324291 (Version 1)
Quarter: 2013Q2

REPORT INFORMATION
  Report Type: Spontaneous
  Country: IT (occurrence: IT)
  Receive Date: 20130603
  Receipt Date: 20130603
  Transmission Date: 20140414
  Serious: Yes (Hospitalization)
  Sender: FDA-Public Use
  Company Number: PHHY2013IT054638

PATIENT
  Sex: Male

DRUGS (3)
  1. VOLTAREN [Suspect]
     Indication: ARTHRALGIA
     Dosage: 75 MG, DAILY
     Route: 030
     Dates: start: 20120504, end: 20120509
  2. MIOTENS [Suspect]
     Indication: ARTHRALGIA
     Dosage: 8 MG, DAILY
     Route: 030
     Dates: start: 20120504, end: 20120509
  3. LOBIVON [Concomitant]
     Indication: MYOCARDIAL ISCHAEMIA
     Dosage: 5 MG

REACTIONS (2)
  - Rhabdomyolysis [Recovering/Resolving]
  - Iatrogenic injury [None]
